FAERS Safety Report 9741981 (Version 2)
Quarter: 2014Q1

REPORT INFORMATION
  Report Type: Spontaneous
  Country: US (occurrence: US)
  Receive Date: 20131210
  Receipt Date: 20140101
  Transmission Date: 20141002
  Serious: Yes (Other)
  Sender: FDA-Public Use
  Company Number: US-AMGEN-USASP2013085435

PATIENT
  Age: 79 Year
  Sex: Female

DRUGS (1)
  1. PROLIA [Suspect]
     Indication: OSTEOPOROSIS POSTMENOPAUSAL
     Dosage: UNK UNK, Q6MO
     Route: 065
     Dates: start: 20131118

REACTIONS (11)
  - Swollen tongue [Recovered/Resolved]
  - Lip swelling [Recovered/Resolved]
  - Skin discolouration [Unknown]
  - Formication [Unknown]
  - Urinary tract infection [Recovered/Resolved]
  - Cough [Unknown]
  - Hypoaesthesia oral [Unknown]
  - Suprapubic pain [Unknown]
  - Hypersensitivity [Unknown]
  - Sensation of heaviness [Unknown]
  - Abdominal tenderness [Unknown]
